FAERS Safety Report 4376825-8 (Version None)
Quarter: 2004Q2

REPORT INFORMATION
  Report Type: 
  Country: None (occurrence: None)
  Receive Date: 20040609
  Receipt Date: 20040420
  Transmission Date: 20050107
  Serious: Yes (Other)
  Sender: FDA-Public Use
  Company Number: PHEH2004US04241

PATIENT
  Age: 72 Year
  Sex: Male
  Weight: 106.1 kg

DRUGS (3)
  1. GLEEVEC [Suspect]
     Indication: CHRONIC MYELOID LEUKAEMIA
     Dates: start: 20031207
  2. COUMADIN [Concomitant]
  3. LOVENOX [Concomitant]

REACTIONS (8)
  - ECCHYMOSIS [None]
  - HAEMATOCRIT DECREASED [None]
  - HAEMATOMA [None]
  - HAEMOGLOBIN DECREASED [None]
  - PAIN [None]
  - POST PROCEDURAL HAEMORRHAGE [None]
  - SWELLING [None]
  - WALKING AID USER [None]
